FAERS Safety Report 5624303-8 (Version None)
Quarter: 2008Q1

REPORT INFORMATION
  Report Type: 
  Country: None (occurrence: None)
  Receive Date: 20080213
  Receipt Date: 20080201
  Transmission Date: 20080703
  Serious: Yes (Death, Hospitalization)
  Sender: FDA-Public Use
  Company Number: ZA-ELI_LILLY_AND_COMPANY-ZA200802000505

PATIENT
  Sex: Female
  Weight: 38 kg

DRUGS (6)
  1. CAPASTAT SULFATE [Suspect]
     Indication: TUBERCULOSIS
     Dosage: 500 MG, DAILY (1/D)
     Route: 030
     Dates: start: 20080116, end: 20080124
  2. TERIZIDONE [Concomitant]
     Indication: TUBERCULOSIS
     Dosage: 500 MG, DAILY (1/D)
     Route: 048
     Dates: start: 20080116, end: 20080124
  3. P.A.S. [Concomitant]
     Indication: TUBERCULOSIS
     Dosage: 4 G, 2/D
     Route: 048
     Dates: start: 20080116, end: 20080124
  4. PYRAZINAMIDE [Concomitant]
     Dosage: 1 G, DAILY (1/D)
     Route: 048
     Dates: start: 20080116, end: 20080124
  5. ETHAMBUTOL HYDROCHLORIDE [Concomitant]
     Indication: TUBERCULOSIS
     Dosage: 800 MG, DAILY (1/D)
     Route: 048
     Dates: start: 20080116, end: 20080124
  6. ETHIONAMIDE [Concomitant]
     Indication: TUBERCULOSIS
     Dosage: 500 MG, DAILY (1/D)
     Route: 048
     Dates: start: 20080116, end: 20080124

REACTIONS (1)
  - RENAL FAILURE ACUTE [None]
